FAERS Safety Report 6416036-5 (Version None)
Quarter: 2009Q4

REPORT INFORMATION
  Report Type: 
  Country: None (occurrence: None)
  Receive Date: 20091027
  Receipt Date: 20091016
  Transmission Date: 20100525
  Serious: Yes (Other)
  Sender: FDA-Public Use
  Company Number: GB-ASTRAZENECA-2009SE20700

PATIENT
  Sex: Female

DRUGS (11)
  1. CRESTOR [Suspect]
     Indication: HYPERLIPIDAEMIA
     Route: 048
     Dates: start: 20050101, end: 20090929
  2. KLARAM [Interacting]
     Indication: SINUSITIS
     Route: 048
     Dates: start: 20090925
  3. ASPIRIN [Concomitant]
  4. ATROVENT [Concomitant]
  5. CALCICHEW D3 [Concomitant]
     Route: 048
  6. CELEBREX [Concomitant]
     Dosage: 2/1 DAYS
  7. COZAAR [Concomitant]
  8. OMEPRAZOLE [Concomitant]
     Route: 048
  9. PARACETAMOL [Concomitant]
     Route: 048
  10. SERETIDE [Concomitant]
  11. ZANIDIP [Concomitant]

REACTIONS (2)
  - DERMATITIS ALLERGIC [None]
  - DRUG INTERACTION [None]
